FAERS Safety Report 8501308-0 (Version None)
Quarter: 2012Q3

REPORT INFORMATION
  Report Type: 
  Country: None (occurrence: None)
  Receive Date: 20120710
  Receipt Date: 20120704
  Transmission Date: 20120928
  Serious: Yes (Hospitalization, Other)
  Sender: FDA-Public Use
  Company Number: US-PFIZER INC-9945441

PATIENT
  Sex: Male

DRUGS (5)
  1. ZOLOFT [Suspect]
     Dosage: 50 MG, 1X/DAY
     Route: 048
     Dates: start: 19900101, end: 19990101
  2. CALAN SR [Suspect]
     Dosage: 240 MG, 1X/DAY
     Route: 048
     Dates: start: 19920101, end: 19990101
  3. LITHOBID [Concomitant]
     Route: 048
     Dates: start: 19850101
  4. VITAMIN E [Concomitant]
     Dosage: UNK
     Route: 048
     Dates: start: 19940101
  5. ZOCOR [Suspect]
     Dosage: 20 MG, DAILY AT BED TIME
     Dates: start: 19990301, end: 19991201

REACTIONS (2)
  - GYNAECOMASTIA [None]
  - ERYTHEMA [None]
